FAERS Safety Report 7322414-2 (Version None)
Quarter: 2011Q1

REPORT INFORMATION
  Report Type: 
  Country: None (occurrence: None)
  Receive Date: 20110301
  Receipt Date: 20060309
  Transmission Date: 20110831
  Serious: No
  Sender: FDA-Public Use
  Company Number: 2006BI003980

PATIENT
  Sex: Female
  Weight: 68 kg

DRUGS (3)
  1. AMPYRA [Concomitant]
  2. TYSABRI [Suspect]
     Indication: MULTIPLE SCLEROSIS
     Route: 042
     Dates: start: 20050120, end: 20050201
  3. TYSABRI [Suspect]
     Route: 042
     Dates: start: 20061109

REACTIONS (16)
  - BLOOD ELECTROLYTES DECREASED [None]
  - COGNITIVE DISORDER [None]
  - APHAGIA [None]
  - PAIN [None]
  - BLOOD CALCIUM DECREASED [None]
  - URINARY TRACT INFECTION [None]
  - ORAL PAIN [None]
  - PARAESTHESIA [None]
  - BLOOD SODIUM DECREASED [None]
  - GINGIVAL RECESSION [None]
  - TEETH BRITTLE [None]
  - APHASIA [None]
  - HYPOAESTHESIA [None]
  - VISUAL IMPAIRMENT [None]
  - FATIGUE [None]
  - MULTIPLE SCLEROSIS RELAPSE [None]
